FAERS Safety Report 10349589 (Version 1)
Quarter: 2014Q3

REPORT INFORMATION
  Report Type: Spontaneous
  Country: US (occurrence: None)
  Receive Date: 20140728
  Receipt Date: 20140728
  Transmission Date: 20150326
  Serious: No
  Sender: FDA-Public Use
  Company Number: None

PATIENT
  Age: 42 Year
  Sex: Female
  Weight: 72.58 kg

DRUGS (1)
  1. NIACIN. [Suspect]
     Active Substance: NIACIN
     Indication: VITAMIN SUPPLEMENTATION
     Dates: start: 20140726, end: 20140727

REACTIONS (8)
  - Dyspnoea [None]
  - Ocular hyperaemia [None]
  - Confusional state [None]
  - Dry eye [None]
  - Skin burning sensation [None]
  - Pruritus [None]
  - Nasal congestion [None]
  - Product substitution issue [None]

NARRATIVE: CASE EVENT DATE: 20140726
